FAERS Safety Report 10690071 (Version 1)
Quarter: 2015Q1

REPORT INFORMATION
  Report Type: Spontaneous
  Country: FR (occurrence: FR)
  Receive Date: 20150105
  Receipt Date: 20150105
  Transmission Date: 20150720
  Serious: Yes (Hospitalization)
  Sender: FDA-Public Use
  Company Number: FR-JNJFOC-20141217268

PATIENT
  Age: 75 Year
  Sex: Female

DRUGS (3)
  1. RISPERDAL [Suspect]
     Active Substance: RISPERIDONE
     Indication: MANIA
     Route: 048
     Dates: start: 20141022, end: 20141126
  2. RISPERDAL [Suspect]
     Active Substance: RISPERIDONE
     Indication: MANIA
     Route: 048
     Dates: start: 20140908, end: 20141022
  3. TEGRETOL [Suspect]
     Active Substance: CARBAMAZEPINE
     Indication: MANIA
     Route: 065
     Dates: start: 20140919, end: 20141126

REACTIONS (1)
  - Stevens-Johnson syndrome [Recovered/Resolved]

NARRATIVE: CASE EVENT DATE: 20141112
